FAERS Safety Report 8618713-4 (Version None)
Quarter: 2012Q3

REPORT INFORMATION
  Report Type: 
  Country: None (occurrence: None)
  Receive Date: 20120824
  Receipt Date: 20120815
  Transmission Date: 20120928
  Serious: Yes (Other)
  Sender: FDA-Public Use
  Company Number: NO-JNJFOC-20120808254

PATIENT
  Age: 47 Year
  Sex: Male
  Weight: 90 kg

DRUGS (2)
  1. STELARA [Suspect]
     Route: 058
     Dates: start: 20111001, end: 20120810
  2. STELARA [Suspect]
     Indication: PSORIASIS
     Route: 058
     Dates: start: 20100601, end: 20101201

REACTIONS (2)
  - EYE OPERATION [None]
  - DRUG INEFFECTIVE [None]
